FAERS Safety Report 15717719 (Version 1)
Quarter: 2018Q4

REPORT INFORMATION
  Report Type: Spontaneous
  Country: US (occurrence: US)
  Receive Date: 20181213
  Receipt Date: 20181213
  Transmission Date: 20190205
  Serious: No
  Sender: FDA-Public Use
  Company Number: US-ASTELLAS-2018US024965

PATIENT
  Age: 60 Year
  Sex: Female

DRUGS (4)
  1. TARCEVA [Suspect]
     Active Substance: ERLOTINIB HYDROCHLORIDE
     Indication: PRODUCT USED FOR UNKNOWN INDICATION
     Dosage: 150 MG, ONCE DAILY, 5 MONTHS
     Route: 048
  2. TARCEVA [Suspect]
     Active Substance: ERLOTINIB HYDROCHLORIDE
     Dosage: 150 MG, ONCE DAILY, 6 MONTHS
     Route: 048
  3. TARCEVA [Suspect]
     Active Substance: ERLOTINIB HYDROCHLORIDE
     Route: 048
     Dates: start: 20180130
  4. TARCEVA [Suspect]
     Active Substance: ERLOTINIB HYDROCHLORIDE
     Route: 048
     Dates: start: 20180223, end: 20180705

REACTIONS (11)
  - Paronychia [Unknown]
  - Dyspnoea [Unknown]
  - Back pain [Recovering/Resolving]
  - Acne [Unknown]
  - Thermal burn [Recovering/Resolving]
  - Hot flush [Unknown]
  - Fatigue [Unknown]
  - Decreased appetite [Unknown]
  - Alopecia [Unknown]
  - Dry skin [Unknown]
  - Nail disorder [Unknown]

NARRATIVE: CASE EVENT DATE: 20180201
